FAERS Safety Report 12776608 (Version 1)
Quarter: 2016Q3

REPORT INFORMATION
  Report Type: Spontaneous
  Country: US (occurrence: US)
  Receive Date: 20160923
  Receipt Date: 20160923
  Transmission Date: 20161109
  Serious: No
  Sender: FDA-Public Use
  Company Number: US-TARO-2015TAR00961

PATIENT
  Age: 79 Year
  Sex: Female
  Weight: 49.89 kg

DRUGS (2)
  1. HYDROCORTISONE VALERATE CREAM USP 0.2% [Suspect]
     Active Substance: HYDROCORTISONE VALERATE
     Indication: RASH
     Dosage: UNK
     Dates: start: 20151006
  2. HYRDROXYCHLOROQUINE SULFATE [Concomitant]

REACTIONS (1)
  - Drug ineffective [Not Recovered/Not Resolved]

NARRATIVE: CASE EVENT DATE: 20151008
